FAERS Safety Report 6939324-2 (Version None)
Quarter: 2010Q3

REPORT INFORMATION
  Report Type: 
  Country: None (occurrence: None)
  Receive Date: 20100824
  Receipt Date: 20100810
  Transmission Date: 20110219
  Serious: Yes (Other)
  Sender: FDA-Public Use
  Company Number: JP-PFIZER INC-2010092076

PATIENT
  Age: 69 Year
  Sex: Female

DRUGS (4)
  1. AZULFIDINE [Suspect]
     Indication: RHEUMATOID ARTHRITIS
     Dosage: 500 MG, 2X/DAY
     Route: 048
     Dates: start: 20100621, end: 20100716
  2. AZULFIDINE [Suspect]
     Dosage: UNK
     Dates: start: 20100805
  3. CELECOXIB [Concomitant]
     Dosage: 100 MG, 2X/DAY
     Route: 048
     Dates: start: 20100621
  4. MUCOSTA [Concomitant]
     Dosage: 100 MG, 2X/DAY
     Route: 048
     Dates: start: 20100621, end: 20100722

REACTIONS (5)
  - BLOOD TEST ABNORMAL [None]
  - C-REACTIVE PROTEIN ABNORMAL [None]
  - PRURITUS [None]
  - RASH [None]
  - RHEUMATOID ARTHRITIS [None]
